FAERS Safety Report 8266204-5 (Version None)
Quarter: 2012Q2

REPORT INFORMATION
  Report Type: 
  Country: None (occurrence: None)
  Receive Date: 20120406
  Receipt Date: 20120402
  Transmission Date: 20120825
  Serious: Yes (Other)
  Sender: FDA-Public Use
  Company Number: AU-ABBOTT-12P-008-0918162-00

PATIENT
  Sex: Female

DRUGS (2)
  1. CREON [Suspect]
  2. CREON [Suspect]
     Indication: PRODUCT USED FOR UNKNOWN INDICATION
     Dosage: TAKES 30 X 25000 UNITS CAPSULES / DAY

REACTIONS (4)
  - FEELING ABNORMAL [None]
  - BLOOD GLUCOSE INCREASED [None]
  - ARTHRALGIA [None]
  - INCORRECT DOSE ADMINISTERED [None]
